FAERS Safety Report 20349421 (Version 1)
Quarter: 2022Q1

REPORT INFORMATION
  Report Type: Spontaneous
  Country: US (occurrence: US)
  Receive Date: 20220119
  Receipt Date: 20220119
  Transmission Date: 20220423
  Serious: Yes (Hospitalization)
  Sender: FDA-Public Use
  Company Number: US-JNJFOC-20211134577

PATIENT
  Age: 67 Year
  Sex: Male

DRUGS (5)
  1. STELARA [Suspect]
     Active Substance: USTEKINUMAB
     Indication: Crohn^s disease
     Route: 042
     Dates: start: 20210903
  2. STELARA [Suspect]
     Active Substance: USTEKINUMAB
     Route: 058
  3. SIMVASTATIN [Concomitant]
     Active Substance: SIMVASTATIN
     Indication: Blood cholesterol
  4. VITAMIN B12 [Concomitant]
     Active Substance: CYANOCOBALAMIN
     Indication: Neuropathy peripheral
     Dosage: 4-5 YEARS
  5. CLARITIN [Concomitant]
     Active Substance: LORATADINE
     Indication: Sinus disorder
     Dosage: 2-3 YEARS

REACTIONS (1)
  - Thrombosis [Recovering/Resolving]

NARRATIVE: CASE EVENT DATE: 20210927
